FAERS Safety Report 10019148 (Version 1)
Quarter: 2014Q1

REPORT INFORMATION
  Report Type: Spontaneous
  Country: US (occurrence: None)
  Receive Date: 20140314
  Receipt Date: 20140314
  Transmission Date: 20141002
  Serious: Yes (Other)
  Sender: FDA-Public Use
  Company Number: None

PATIENT
  Age: 25 Year
  Sex: Female
  Weight: 67.13 kg

DRUGS (4)
  1. PROMETRIUM [Suspect]
     Indication: OLIGOMENORRHOEA
     Dosage: 2 TABLETS QD ORAL
     Route: 048
     Dates: start: 20130507, end: 20130517
  2. TRI-SPRINTEC [Concomitant]
  3. THYROLAR [Concomitant]
  4. PLAN B ONE STEP [Concomitant]

REACTIONS (5)
  - Vaginal haemorrhage [None]
  - Muscle spasms [None]
  - Fatigue [None]
  - Dizziness [None]
  - Nausea [None]
